FAERS Safety Report 7995008-3 (Version None)
Quarter: 2011Q4

REPORT INFORMATION
  Report Type: 
  Country: None (occurrence: None)
  Receive Date: 20111220
  Receipt Date: 20111207
  Transmission Date: 20120403
  Serious: Yes (Hospitalization)
  Sender: FDA-Public Use
  Company Number: JP-SANOFI-AVENTIS-2011SA081052

PATIENT
  Age: 44 Year
  Sex: Female
  Weight: 36.4 kg

DRUGS (10)
  1. CISPLATIN [Suspect]
     Indication: GASTRIC CANCER
     Dosage: 7 COURSES
     Route: 065
     Dates: start: 20090601
  2. DICLOFENAC [Concomitant]
     Route: 048
  3. OMEPRAZOLE [Concomitant]
     Route: 048
  4. FUROSEMIDE [Suspect]
     Indication: ASCITES
     Dosage: 20-40 MG
     Route: 048
  5. TS-1 [Concomitant]
     Indication: GASTRIC CANCER
     Dosage: ON DAY 1-21
     Dates: start: 20090601, end: 20100223
  6. LAXATIVES [Concomitant]
     Route: 048
  7. CISPLATIN [Suspect]
     Dosage: DAY 8
     Route: 065
     Dates: end: 20100210
  8. ESTAZOLAM [Concomitant]
     Route: 048
  9. SPIRONOLACTONE [Concomitant]
     Route: 048
  10. ZOLEDRONIC ACID [Suspect]
     Route: 042
     Dates: start: 20090601

REACTIONS (5)
  - HYPOCALCAEMIA [None]
  - HYPOPHOSPHATAEMIA [None]
  - HYPOKALAEMIA [None]
  - HYPOMAGNESAEMIA [None]
  - RENAL INJURY [None]
